FAERS Safety Report 7756985-9 (Version None)
Quarter: 2011Q3

REPORT INFORMATION
  Report Type: 
  Country: None (occurrence: None)
  Receive Date: 20110916
  Receipt Date: 20110916
  Transmission Date: 20111222
  Serious: Yes (Hospitalization, Other)
  Sender: FDA-Public Use
  Company Number: None

PATIENT
  Sex: Male

DRUGS (1)
  1. CLOZAPINE [Suspect]
     Dosage: ONE
     Route: 048
     Dates: start: 20110726, end: 20110908

REACTIONS (3)
  - RESPIRATORY FAILURE [None]
  - ILL-DEFINED DISORDER [None]
  - RENAL FAILURE [None]
